FAERS Safety Report 12686298 (Version 1)
Quarter: 2016Q3

REPORT INFORMATION
  Report Type: Spontaneous
  Country: US (occurrence: US)
  Receive Date: 20160825
  Receipt Date: 20160825
  Transmission Date: 20161109
  Serious: No
  Sender: FDA-Public Use
  Company Number: US-JAZZ-2016-US-006898

PATIENT
  Age: 28 Year
  Sex: Female

DRUGS (4)
  1. XYREM [Suspect]
     Active Substance: SODIUM OXYBATE
     Indication: NARCOLEPSY
     Dosage: 2.25 G, BID
     Route: 048
     Dates: start: 20160410
  2. FLONASE [Concomitant]
     Active Substance: FLUTICASONE PROPIONATE
  3. METHYLPREDNISOLONE. [Concomitant]
     Active Substance: METHYLPREDNISOLONE
  4. COLCRYS [Concomitant]
     Active Substance: COLCHICINE

REACTIONS (13)
  - Skin exfoliation [Unknown]
  - Photopsia [Unknown]
  - Dehydration [Unknown]
  - Blister [Unknown]
  - Nausea [Unknown]
  - Vision blurred [Unknown]
  - Retching [Unknown]
  - Asthenia [Unknown]
  - Nervousness [Unknown]
  - Hypoaesthesia [Unknown]
  - Feeling drunk [Unknown]
  - Limb discomfort [Unknown]
  - Hyperhidrosis [Unknown]

NARRATIVE: CASE EVENT DATE: 201604
